FAERS Safety Report 6728932-X (Version None)
Quarter: 2010Q2

REPORT INFORMATION
  Report Type: 
  Country: None (occurrence: None)
  Receive Date: 20100517
  Receipt Date: 20100308
  Transmission Date: 20101027
  Serious: No
  Sender: FDA-Public Use
  Company Number: US-ABBOTT-10P-163-0632056-00

PATIENT
  Sex: Male

DRUGS (1)
  1. SIMCOR [Suspect]
     Indication: DRUG USE FOR UNKNOWN INDICATION
     Dosage: 1 TABLET IN AM AND 1 IN EVENING
     Route: 048

REACTIONS (2)
  - FLUSHING [None]
  - PRURITUS [None]
